FAERS Safety Report 5386093-6 (Version None)
Quarter: 2007Q3

REPORT INFORMATION
  Report Type: 
  Country: None (occurrence: None)
  Receive Date: 20070710
  Receipt Date: 20070703
  Transmission Date: 20080115
  Serious: Yes (Death)
  Sender: FDA-Public Use
  Company Number: 430002E07DEU

PATIENT
  Age: 70 Year
  Sex: Male

DRUGS (5)
  1. NOVANTRONE [Suspect]
     Dosage: 12.7 MG, ONCE,  INTRAVENOUS (NOT OTHERWISE SPECIFIED)
     Route: 042
     Dates: start: 20050620, end: 20050624
  2. GEMTUZUMAB OZOGAMICIN (GEMTUZUMAB OZOGAMICIN) [Suspect]
     Dosage: INTRAVENOUS (NOT OTHERWISE SPECIFIED)
     Route: 042
     Dates: start: 20050607, end: 20050607
  3. CYTARABINE [Suspect]
     Dosage: 182 MG, ONCE, INTRAVENOUS (NOT OTHERWISE SPECIFIED)
     Route: 042
     Dates: start: 20050620, end: 20050626
  4. ETOPOSIDE [Suspect]
     Dosage: 182 MG, ONCE, INTRAVENOUS (NOT OTHERWISE SPECIFIED)
     Route: 042
     Dates: start: 20050620, end: 20050622
  5. PREDNISONE /00044701/ [Concomitant]

REACTIONS (1)
  - MYOCARDIAL INFARCTION [None]
